FAERS Safety Report 7625658-5 (Version None)
Quarter: 2011Q3

REPORT INFORMATION
  Report Type: 
  Country: None (occurrence: None)
  Receive Date: 20110713
  Receipt Date: 20110629
  Transmission Date: 20111222
  Serious: Yes (Hospitalization)
  Sender: FDA-Public Use
  Company Number: CA-005575

PATIENT
  Sex: Male

DRUGS (5)
  1. CALCIUM ACETATE [Concomitant]
  2. CASODEX [Concomitant]
  3. PREVACID [Concomitant]
  4. FIRMAGON [Suspect]
     Indication: PROSTATE CANCER
     Dosage: 80 MG 1X/MONTH, SUBCUTANEOUS
     Route: 058
  5. ADVIL [Concomitant]

REACTIONS (16)
  - DYSPNOEA [None]
  - HYPERHIDROSIS [None]
  - BLOOD CREATININE INCREASED [None]
  - HYPERTENSIVE EMERGENCY [None]
  - FLATULENCE [None]
  - NAUSEA [None]
  - RESPIRATORY RATE DECREASED [None]
  - BURNING SENSATION [None]
  - DIZZINESS [None]
  - PALLOR [None]
  - LEFT VENTRICULAR HYPERTROPHY [None]
  - ADENOMA BENIGN [None]
  - ERUCTATION [None]
  - BLOOD PRESSURE DECREASED [None]
  - CHEST DISCOMFORT [None]
  - ABDOMINAL PAIN [None]
